FAERS Safety Report 23493185 (Version 1)
Quarter: 2024Q1

REPORT INFORMATION
  Report Type: Spontaneous
  Country: US (occurrence: None)
  Receive Date: 20240206
  Receipt Date: 20240206
  Transmission Date: 20240410
  Serious: Yes (Death)
  Sender: FDA-Public Use
  Company Number: None

PATIENT
  Sex: Female

DRUGS (5)
  1. TACROLIMUS [Suspect]
     Active Substance: TACROLIMUS
     Indication: Pulmonary arterial hypertension
     Dosage: FREQUENCY : DAILY;?
     Dates: start: 202308
  2. MYCOPHENOLATE ORAL SUSP [Concomitant]
  3. NIVESTYM SD PFS [Concomitant]
  4. SIROLIMUS ORAL SOLN [Concomitant]
  5. SIROLIMUS [Concomitant]

REACTIONS (1)
  - Death [None]
